FAERS Safety Report 7857890-X (Version None)
Quarter: 2011Q4

REPORT INFORMATION
  Report Type: 
  Country: None (occurrence: None)
  Receive Date: 20111027
  Receipt Date: 20110217
  Transmission Date: 20120403
  Serious: No
  Sender: FDA-Public Use
  Company Number: US-BAYER-2011-016397

PATIENT
  Sex: Female

DRUGS (4)
  1. ALEVE (CAPLET) [Suspect]
     Indication: PAIN
     Dosage: DAILY, TID
     Route: 048
     Dates: start: 20110213, end: 20110216
  2. CLONIDINE [Concomitant]
  3. DIOVAN [Concomitant]
  4. ALEVE (CAPLET) [Suspect]
     Indication: PAIN
     Dosage: DAILY, TID
     Route: 048
     Dates: start: 20110213, end: 20110216

REACTIONS (5)
  - MICTURITION FREQUENCY DECREASED [None]
  - OEDEMA PERIPHERAL [None]
  - VAGINAL HAEMORRHAGE [None]
  - HEART RATE INCREASED [None]
  - BLOOD PRESSURE INCREASED [None]
